FAERS Safety Report 5163971-4 (Version None)
Quarter: 2006Q4

REPORT INFORMATION
  Report Type: 
  Country: None (occurrence: None)
  Receive Date: 20061124
  Receipt Date: 20061114
  Transmission Date: 20070319
  Serious: Yes (Hospitalization)
  Sender: FDA-Public Use
  Company Number: 2006123971

PATIENT
  Age: 77 Year
  Sex: Female
  Weight: 59.8748 kg

DRUGS (13)
  1. CHANTIX [Suspect]
     Indication: SMOKING CESSATION THERAPY
     Dates: start: 20060901
  2. ACCOLATE [Concomitant]
  3. LANOXIN [Concomitant]
  4. VITAMIN C (VITAMIN C) [Concomitant]
  5. VITAMIN B COMPLEX CAP [Concomitant]
  6. ALL OTHER NON-THERAPEUTIC PRODUCTS (ALL OTHER NON-THERAPEUTIC PRODUCTS [Concomitant]
  7. PREDNISONE TAB [Concomitant]
  8. ALBUTEROL [Concomitant]
  9. ENALAPRIL MALEATE [Concomitant]
  10. DIURETICS (DIURETICS) [Concomitant]
  11. LUNESTA [Concomitant]
  12. LORTAB [Concomitant]
  13. ATIVAN [Concomitant]

REACTIONS (6)
  - BRONCHITIS [None]
  - DIARRHOEA [None]
  - PHARMACEUTICAL PRODUCT COMPLAINT [None]
  - PNEUMONIA [None]
  - RIB FRACTURE [None]
  - VOMITING [None]
